FAERS Safety Report 8764254 (Version 1)
Quarter: 2012Q4

REPORT INFORMATION
  Report Type: Report from Study
  Country: KR (occurrence: KR)
  Receive Date: 20120828
  Receipt Date: 20120828
  Transmission Date: 20130627
  Serious: Yes (Death, Other)
  Sender: FDA-Public Use
  Company Number: KR-ELI_LILLY_AND_COMPANY-EWC051046306

PATIENT
  Age: 44 Year
  Sex: Female
  Weight: 47 kg

DRUGS (3)
  1. GEMCITABINE HYDROCHLORIDE [Suspect]
     Indication: NON-SMALL CELL LUNG CANCER
     Dosage: 1500 mg, UNK
     Route: 042
     Dates: start: 20040712, end: 20041022
  2. GRANISETRON [Concomitant]
     Indication: PROPHYLAXIS
     Dosage: 3 mg, unknown
     Route: 042
     Dates: start: 20040712, end: 20041018
  3. WARFARIN [Concomitant]
     Indication: THROMBOSIS
     Dosage: 1 mg, unknown
     Route: 048
     Dates: start: 20040712, end: 20040731

REACTIONS (2)
  - Hepatic enzyme increased [Fatal]
  - Malignant neoplasm progression [Fatal]
